FAERS Safety Report 6449169-8 (Version None)
Quarter: 2009Q4

REPORT INFORMATION
  Report Type: 
  Country: None (occurrence: None)
  Receive Date: 20091120
  Receipt Date: 20060207
  Transmission Date: 20100525
  Serious: Yes (Hospitalization)
  Sender: FDA-Public Use
  Company Number: PHNU2006AU00836

PATIENT
  Sex: Male

DRUGS (8)
  1. CLOZARIL [Suspect]
     Dosage: 50 MG
     Route: 048
     Dates: start: 19981007
  2. CLOZARIL [Suspect]
     Dosage: 200 MG
     Dates: start: 19981014
  3. CLOZARIL [Suspect]
     Dosage: 400 MG
     Dates: start: 19981021
  4. CLOZARIL [Suspect]
     Dosage: 300 MG
     Dates: start: 19981028
  5. CLOZARIL [Suspect]
     Dosage: 100 MG
     Dates: start: 19981130
  6. CLOZARIL [Suspect]
     Dosage: 400 MG
     Dates: start: 19981214
  7. CLOZARIL [Suspect]
     Dosage: 600 MG
     Dates: start: 19991025
  8. CLOZARIL [Suspect]
     Dosage: 300 MG
     Dates: start: 20030121

REACTIONS (5)
  - DEPRESSIVE SYMPTOM [None]
  - DRUG INEFFECTIVE [None]
  - HALLUCINATION [None]
  - OBSESSIVE-COMPULSIVE DISORDER [None]
  - WEIGHT DECREASED [None]
